FAERS Safety Report 6717129-5 (Version None)
Quarter: 2010Q2

REPORT INFORMATION
  Report Type: 
  Country: None (occurrence: None)
  Receive Date: 20100505
  Receipt Date: 20100423
  Transmission Date: 20101027
  Serious: Yes (Life-Threatening, Hospitalization)
  Sender: FDA-Public Use
  Company Number: 2010AP000861

PATIENT
  Age: 48 Year
  Sex: Male

DRUGS (5)
  1. TOPIRAMATE [Suspect]
     Indication: NEURALGIA
     Route: 048
  2. GABAPENTIN [Concomitant]
  3. HYPROMELLOSE [Concomitant]
  4. SIMVASTATIN [Concomitant]
  5. VENLAFAXINE [Concomitant]

REACTIONS (5)
  - AFFECT LABILITY [None]
  - ANGER [None]
  - MOOD ALTERED [None]
  - PARAESTHESIA [None]
  - SUICIDE ATTEMPT [None]
